FAERS Safety Report 21228869 (Version 4)
Quarter: 2022Q3

REPORT INFORMATION
  Report Type: Report from Study
  Country: US (occurrence: None)
  Receive Date: 20220818
  Receipt Date: 20220913
  Transmission Date: 20221026
  Serious: Yes (Hospitalization, Congenital Anomaly)
  Sender: FDA-Public Use
  Company Number: US-ROCHE-3157650

PATIENT
  Age: 0 Year
  Sex: Female
  Weight: 4.25 kg

DRUGS (14)
  1. RISDIPLAM [Suspect]
     Active Substance: RISDIPLAM
     Indication: Spinal muscular atrophy
     Dosage: ON 02/AUG/2022, SHE RECEIVED LAST DOSE OF RISDIPLAM BEFORE THE ONSET OF THE AE
     Route: 064
     Dates: start: 20220621
  2. RISDIPLAM [Suspect]
     Active Substance: RISDIPLAM
     Route: 048
     Dates: start: 20220811
  3. ACETAMINOPHEN [Concomitant]
     Active Substance: ACETAMINOPHEN
     Indication: Tension headache
     Route: 064
  4. ASPIRIN [Concomitant]
     Active Substance: ASPIRIN
     Indication: Pre-eclampsia
     Route: 064
  5. CEPHALEXIN [Concomitant]
     Active Substance: CEPHALEXIN
     Route: 064
  6. CETIRIZINE [Concomitant]
     Active Substance: CETIRIZINE HYDROCHLORIDE
     Indication: Seasonal allergy
     Route: 064
  7. CLINDAMYCIN [Concomitant]
     Active Substance: CLINDAMYCIN
     Indication: Folliculitis
     Route: 064
  8. DRAMAMINE [Concomitant]
     Active Substance: DIMENHYDRINATE
     Route: 064
  9. FLUTICASONE [Concomitant]
     Active Substance: FLUTICASONE
     Indication: Seasonal allergy
     Route: 064
  10. MELATONIN [Concomitant]
     Active Substance: MELATONIN
     Route: 064
  11. MONTELUKAST [Concomitant]
     Active Substance: MONTELUKAST SODIUM
     Indication: Seasonal allergy
     Route: 064
  12. OMEPRAZOLE [Concomitant]
     Active Substance: OMEPRAZOLE
     Indication: Gastrooesophageal reflux disease
     Route: 064
  13. VITAMINS [Concomitant]
     Active Substance: VITAMINS
     Route: 064
  14. SERTRALINE [Concomitant]
     Active Substance: SERTRALINE HYDROCHLORIDE
     Indication: Depression
     Route: 064

REACTIONS (5)
  - Cardiac murmur [Unknown]
  - Ventricular septal defect [Not Recovered/Not Resolved]
  - Hypoventilation [Recovered/Resolved]
  - Hypercapnia [Recovered/Resolved]
  - Foetal exposure during pregnancy [Unknown]

NARRATIVE: CASE EVENT DATE: 20220803
